FAERS Safety Report 7746308-3 (Version None)
Quarter: 2011Q3

REPORT INFORMATION
  Report Type: 
  Country: None (occurrence: None)
  Receive Date: 20110912
  Receipt Date: 20110912
  Transmission Date: 20111222
  Serious: No
  Sender: FDA-Public Use
  Company Number: None

PATIENT
  Age: 9 Year
  Sex: Male
  Weight: 32 kg

DRUGS (3)
  1. ZOFRAN [Suspect]
     Indication: VOMITING
     Dosage: 4MG X1 IV
     Route: 042
     Dates: start: 20110613
  2. ZOFRAN [Suspect]
     Indication: NAUSEA
     Dosage: 4MG X1 IV
     Route: 042
     Dates: start: 20110613
  3. SODIUM CHLORIDE [Concomitant]

REACTIONS (2)
  - INFUSION SITE PAIN [None]
  - INFUSION SITE ERYTHEMA [None]
